FAERS Safety Report 24702759 (Version 1)
Quarter: 2024Q4

REPORT INFORMATION
  Report Type: Spontaneous
  Country: US (occurrence: US)
  Receive Date: 20241205
  Receipt Date: 20241205
  Transmission Date: 20250115
  Serious: No
  Sender: INCYTE
  Company Number: US-EVENT-000515

PATIENT

DRUGS (1)
  1. OPZELURA [Suspect]
     Active Substance: RUXOLITINIB PHOSPHATE
     Indication: Dermatitis atopic
     Dosage: APPLY A THIN LAYER TO AFFECTED AREA(S) TWICE DAILY AS DIRECTED
     Route: 065
     Dates: start: 202408

REACTIONS (3)
  - Dermatitis atopic [Unknown]
  - Illness [Unknown]
  - Back pain [Unknown]

NARRATIVE: CASE EVENT DATE: 20241114
